FAERS Safety Report 24145496 (Version 1)
Quarter: 2024Q3

REPORT INFORMATION
  Report Type: Report from Study
  Country: FR (occurrence: FR)
  Receive Date: 20240729
  Receipt Date: 20240729
  Transmission Date: 20241017
  Serious: Yes (Other)
  Sender: BIOGEN
  Company Number: FR-BIOGEN-2024BI01267224

PATIENT
  Age: 34 Year
  Sex: Male
  Weight: 68 kg

DRUGS (2)
  1. OMAVELOXOLONE [Suspect]
     Active Substance: OMAVELOXOLONE
     Indication: Friedreich^s ataxia
     Dosage: 3 CAPSULES OF 50MG
     Route: 050
     Dates: start: 20240205, end: 20240524
  2. OMAVELOXOLONE [Suspect]
     Active Substance: OMAVELOXOLONE
     Route: 050
     Dates: start: 2024

REACTIONS (1)
  - Hepatic cytolysis [Recovered/Resolved]
